FAERS Safety Report 21063806 (Version 5)
Quarter: 2023Q2

REPORT INFORMATION
  Report Type: Report from Study
  Country: US (occurrence: US)
  Receive Date: 20220711
  Receipt Date: 20230527
  Transmission Date: 20230722
  Serious: No
  Sender: FDA-Public Use
  Company Number: US-NOVARTISTESTPH-NVSC2022US156429

PATIENT
  Age: 20 Year
  Sex: Male
  Weight: 72.57 kg

DRUGS (8)
  1. COSENTYX [Suspect]
     Active Substance: SECUKINUMAB
     Indication: Psoriasis
     Dosage: 300 MG, QMO (2 PENS OF 150 MG)
     Route: 058
     Dates: start: 20181121
  2. COSENTYX [Suspect]
     Active Substance: SECUKINUMAB
     Dosage: 150 MG
     Route: 058
  3. CLOBETASOL [Concomitant]
     Active Substance: CLOBETASOL
     Indication: Psoriasis
     Route: 065
  4. KETOCONAZOLE [Concomitant]
     Active Substance: KETOCONAZOLE
     Indication: Psoriasis
     Dosage: UNK
     Route: 065
  5. MOMETASONE [Concomitant]
     Active Substance: MOMETASONE
     Indication: Psoriasis
     Route: 065
  6. CUTIVATE [Concomitant]
     Active Substance: FLUTICASONE PROPIONATE
     Indication: Psoriasis
     Dosage: 0.05 %
     Route: 065
  7. ELIDEL [Concomitant]
     Active Substance: PIMECROLIMUS
     Indication: Product used for unknown indication
     Dosage: 1 %
     Route: 065
  8. FLUTICASONE [Concomitant]
     Active Substance: FLUTICASONE
     Indication: Product used for unknown indication
     Dosage: 0.05 %
     Route: 061

REACTIONS (4)
  - Skin papilloma [Not Recovered/Not Resolved]
  - Psoriasis [Unknown]
  - Skin lesion [Unknown]
  - Drug ineffective [Unknown]

NARRATIVE: CASE EVENT DATE: 20210111
